FAERS Safety Report 10511471 (Version 2)
Quarter: 2014Q4

REPORT INFORMATION
  Report Type: Spontaneous
  Country: US (occurrence: US)
  Receive Date: 20141010
  Receipt Date: 20141106
  Transmission Date: 20150528
  Serious: No
  Sender: FDA-Public Use
  Company Number: US-ROXANE LABORATORIES, INC.-2014-RO-01552RO

PATIENT
  Sex: Female

DRUGS (1)
  1. FAMCICLOVIR. [Suspect]
     Active Substance: FAMCICLOVIR
     Indication: POST HERPETIC NEURALGIA
     Dosage: 375 MG
     Route: 048
     Dates: start: 20130523, end: 20130529

REACTIONS (2)
  - Product quality issue [Unknown]
  - Drug ineffective for unapproved indication [Unknown]
